FAERS Safety Report 6283856-X (Version None)
Quarter: 2009Q3

REPORT INFORMATION
  Report Type: 
  Country: None (occurrence: None)
  Receive Date: 20090723
  Receipt Date: 20090723
  Transmission Date: 20100115
  Serious: No
  Sender: FDA-Public Use
  Company Number: None

PATIENT
  Age: 82 Year
  Sex: Female
  Weight: 81.6475 kg

DRUGS (1)
  1. BYSTOLIC [Suspect]
     Indication: BLOOD PRESSURE
     Dosage: 1 W/HIGH BLOOD PRESSURE MEDICA ONCE A DAY
     Dates: start: 20090716, end: 20090721

REACTIONS (4)
  - DRY MOUTH [None]
  - HEADACHE [None]
  - PRURITUS [None]
  - RASH ERYTHEMATOUS [None]
